FAERS Safety Report 10681279 (Version 1)
Quarter: 2014Q4

REPORT INFORMATION
  Report Type: Spontaneous
  Country: DE (occurrence: DE)
  Receive Date: 20141230
  Receipt Date: 20141230
  Transmission Date: 20150529
  Serious: Yes (Other)
  Sender: FDA-Public Use
  Company Number: DE-AUROBINDO-AUR-APL-2014-13263

PATIENT
  Sex: Female

DRUGS (3)
  1. L-THYROXIN [Concomitant]
     Active Substance: LEVOTHYROXINE SODIUM
     Indication: HYPOTHYROIDISM
     Dosage: 87.5 ?G, ONCE A DAY
     Route: 048
     Dates: start: 20140125, end: 20141015
  2. BISOPROLOL [Suspect]
     Active Substance: BISOPROLOL
     Indication: HYPERTENSION
     Dosage: 6 MG, DAILY (3.5-0-2.5)
     Route: 048
     Dates: start: 20140125, end: 20141015
  3. VENLAFAXINE [Suspect]
     Active Substance: VENLAFAXINE HYDROCHLORIDE
     Indication: ANXIETY DISORDER
     Dosage: 1 DF, DAILY
     Route: 048
     Dates: start: 20140125, end: 20141015

REACTIONS (3)
  - Exposure during pregnancy [Unknown]
  - Cervical incompetence [Unknown]
  - Gestational diabetes [Recovered/Resolved]
